FAERS Safety Report 5818310-X (Version None)
Quarter: 2008Q3

REPORT INFORMATION
  Report Type: 
  Country: None (occurrence: None)
  Receive Date: 20080722
  Receipt Date: 20080710
  Transmission Date: 20090109
  Serious: Yes (Other)
  Sender: FDA-Public Use
  Company Number: ES-PFIZER INC-2008049928

PATIENT
  Sex: Female
  Weight: 73 kg

DRUGS (8)
  1. SUTENT [Suspect]
     Indication: RENAL CANCER
     Route: 048
     Dates: start: 20060601, end: 20080527
  2. LANSOPRAZOL [Concomitant]
     Route: 048
  3. NORVASC [Concomitant]
     Dosage: TEXT:5 MG
     Route: 048
  4. ATENOLOL [Concomitant]
     Dosage: TEXT:50 MG
     Route: 048
  5. FUROSEMIDE [Concomitant]
     Dosage: TEXT:40 MG
     Route: 048
  6. HIBOR [Concomitant]
     Dosage: TEXT:3500 IU
     Route: 048
  7. LORAZEPAM [Concomitant]
     Route: 048
  8. TORSEMIDE [Concomitant]

REACTIONS (3)
  - ATRIAL FIBRILLATION [None]
  - CEREBROVASCULAR ACCIDENT [None]
  - RETINAL DETACHMENT [None]
